FAERS Safety Report 11126274 (Version 2)
Quarter: 2015Q2

REPORT INFORMATION
  Report Type: Spontaneous
  Country: IE (occurrence: US)
  Receive Date: 20150520
  Receipt Date: 20150610
  Transmission Date: 20150821
  Serious: Yes (Hospitalization)
  Sender: FDA-Public Use
  Company Number: IE-MYLANLABS-2015M1016732

PATIENT

DRUGS (4)
  1. COUMADIN [Suspect]
     Active Substance: WARFARIN SODIUM
     Indication: HYPERCOAGULATION
     Dosage: UNK
  2. LOVENOX [Suspect]
     Active Substance: ENOXAPARIN SODIUM
     Indication: HYPERCOAGULATION
     Dosage: UNK
  3. FONDAPARINUX [Suspect]
     Active Substance: FONDAPARINUX
     Indication: HYPERCOAGULATION
     Dosage: UNK, QD
  4. FRAGMIN [Suspect]
     Active Substance: DALTEPARIN SODIUM
     Indication: HYPERCOAGULATION
     Dosage: UNK

REACTIONS (3)
  - Intra-abdominal haematoma [Recovering/Resolving]
  - Impaired work ability [Unknown]
  - Pulmonary thrombosis [Unknown]

NARRATIVE: CASE EVENT DATE: 2010
